FAERS Safety Report 4773048-5 (Version None)
Quarter: 2005Q3

REPORT INFORMATION
  Report Type: 
  Country: None (occurrence: None)
  Receive Date: 20050916
  Receipt Date: 20050905
  Transmission Date: 20060218
  Serious: Yes (Other)
  Sender: FDA-Public Use
  Company Number: B0392761A

PATIENT
  Age: 40 Year
  Sex: Male

DRUGS (6)
  1. EPIVIR [Suspect]
     Indication: HIV INFECTION
  2. RETROVIR [Suspect]
     Indication: HIV INFECTION
  3. EFAVIRENZ (FORMULATION UNKNOWN) (EFAVIRENZ) [Suspect]
     Indication: HIV INFECTION
  4. AMPHOTERICIN B [Concomitant]
  5. FLUCYTOSINE [Suspect]
  6. FLUCONAZOLE [Concomitant]

REACTIONS (7)
  - CRYPTOCOCCOSIS [None]
  - CSF PRESSURE INCREASED [None]
  - DRUG LEVEL INCREASED [None]
  - HEADACHE [None]
  - IMMUNE RECONSTITUTION SYNDROME [None]
  - PLEOCYTOSIS [None]
  - VOMITING [None]
